FAERS Safety Report 17124908 (Version 2)
Quarter: 2020Q1

REPORT INFORMATION
  Report Type: Spontaneous
  Country: US (occurrence: US)
  Receive Date: 20191206
  Receipt Date: 20200123
  Transmission Date: 20200409
  Serious: Yes (Life-Threatening, Hospitalization, Other)
  Sender: FDA-Public Use
  Company Number: US-009507513-1912USA000946

PATIENT
  Age: 28 Year
  Sex: Male
  Weight: 112.93 kg

DRUGS (2)
  1. PROVENTIL [Suspect]
     Active Substance: ALBUTEROL
     Indication: ASTHMA
     Dosage: 2 PUFFS AS NEEDED (PRN), ROUTE REPORTED AS ^INHALENT^
     Route: 055
     Dates: start: 20190206, end: 20191130
  2. PROVENTIL [Suspect]
     Active Substance: ALBUTEROL
     Dosage: 2 PUFFS AS NEEDED (PRN), ROUTE REPORTED AS ^INHALENT^
     Route: 055
     Dates: start: 2019

REACTIONS (3)
  - Pain [Not Recovered/Not Resolved]
  - Inappropriate schedule of product administration [Unknown]
  - Choking [Recovered/Resolved]

NARRATIVE: CASE EVENT DATE: 20190206
